FAERS Safety Report 8077177-2 (Version None)
Quarter: 2012Q1

REPORT INFORMATION
  Report Type: 
  Country: None (occurrence: None)
  Receive Date: 20120127
  Receipt Date: 20120123
  Transmission Date: 20120608
  Serious: Yes (Death)
  Sender: FDA-Public Use
  Company Number: PHEH2012US001974

PATIENT
  Sex: Female

DRUGS (7)
  1. OMEPRAZOLE [Concomitant]
  2. CYANOCOBALAMIN [Concomitant]
  3. DEXAMETHASONE [Concomitant]
  4. TERBINAFINE HCL [Concomitant]
  5. DEPO-ESTRADIOL [Concomitant]
  6. FERROUS SULFATE TAB [Concomitant]
  7. VALTURNA [Suspect]
     Dosage: 1 DF (150/160 MG), DAILY
     Route: 048

REACTIONS (1)
  - DEATH [None]
